FAERS Safety Report 10696575 (Version 2)
Quarter: 2022Q3

REPORT INFORMATION
  Report Type: Spontaneous
  Country: IN (occurrence: IN)
  Receive Date: 20150107
  Receipt Date: 20220821
  Transmission Date: 20221026
  Serious: Yes (Other)
  Sender: FDA-Public Use
  Company Number: IN-GLAXOSMITHKLINE-IN2014GSK045523

PATIENT
  Age: 42 Year
  Sex: Female

DRUGS (4)
  1. ZIDOVUDINE [Suspect]
     Active Substance: ZIDOVUDINE
     Indication: HIV infection
     Dosage: UNK
     Dates: start: 20130424
  2. LAMIVUDINE [Suspect]
     Active Substance: LAMIVUDINE
     Indication: HIV infection
     Dosage: UNK
     Route: 065
     Dates: start: 20110726
  3. NEVIRAPINE [Suspect]
     Active Substance: NEVIRAPINE
     Indication: HIV infection
     Dosage: UNK
     Route: 065
     Dates: start: 20110726
  4. STAVUDINE [Concomitant]
     Active Substance: STAVUDINE
     Indication: HIV infection
     Dosage: UNK
     Route: 065
     Dates: start: 20110726, end: 20130424

REACTIONS (12)
  - Congestive cardiomyopathy [Unknown]
  - Pyrexia [Unknown]
  - Dyspnoea [Unknown]
  - Oedema peripheral [Unknown]
  - Generalised oedema [Unknown]
  - Hepatomegaly [Unknown]
  - Cardiomegaly [Unknown]
  - Sinus tachycardia [Unknown]
  - Splenomegaly [Unknown]
  - Pleural effusion [Unknown]
  - Ascites [Unknown]
  - Systolic dysfunction [Unknown]
